FAERS Safety Report 10358596 (Version 2)
Quarter: 2014Q3

REPORT INFORMATION
  Report Type: Report from Study
  Country: BR (occurrence: BR)
  Receive Date: 20140803
  Receipt Date: 20140815
  Transmission Date: 20150326
  Serious: Yes (Hospitalization, Other)
  Sender: FDA-Public Use
  Company Number: PHHY2014BR094584

PATIENT
  Age: 93 Year
  Sex: Female
  Weight: 43 kg

DRUGS (6)
  1. RIVOTRIL [Concomitant]
     Active Substance: CLONAZEPAM
     Indication: INSOMNIA
  2. LOSARTAN [Concomitant]
     Active Substance: LOSARTAN
     Indication: HYPERTENSION
     Dosage: 3 DF, DAILY
     Route: 048
  3. DONAREN [Concomitant]
     Active Substance: TRAZODONE HYDROCHLORIDE
     Indication: DEMENTIA ALZHEIMER^S TYPE
     Dosage: 1 DF, DAILY
     Route: 048
  4. EXELON PATCH [Suspect]
     Active Substance: RIVASTIGMINE
     Indication: DEMENTIA ALZHEIMER^S TYPE
     Dosage: 9.5 MG, DAILY (ONE PATCH (18 MG/10 CM2), DAILY)
     Route: 062
     Dates: start: 201302
  5. SAPHRIS [Concomitant]
     Active Substance: ASENAPINE MALEATE
     Indication: DEMENTIA ALZHEIMER^S TYPE
     Dosage: 1 DF, QHS
     Route: 048
  6. RIVOTRIL [Concomitant]
     Active Substance: CLONAZEPAM
     Indication: SLEEP DISORDER
     Dosage: 3 GTT, QHS
     Route: 048

REACTIONS (6)
  - Pneumonia [Recovered/Resolved]
  - Syncope [Recovered/Resolved]
  - Fear [Recovered/Resolved]
  - Pleural effusion [Recovered/Resolved]
  - Panic disorder [Recovered/Resolved]
  - Blood pressure decreased [Recovered/Resolved]

NARRATIVE: CASE EVENT DATE: 201311
